FAERS Safety Report 7610729-X (Version None)
Quarter: 2011Q3

REPORT INFORMATION
  Report Type: 
  Country: None (occurrence: None)
  Receive Date: 20110707
  Receipt Date: 20110622
  Transmission Date: 20111222
  Serious: Yes (Life-Threatening, Hospitalization)
  Sender: FDA-Public Use
  Company Number: 2011MA007928

PATIENT
  Age: 43 Year
  Sex: Female

DRUGS (1)
  1. SERTRALINE HYDROCHLORIDE [Suspect]
     Indication: DEPRESSION
     Dosage: 100 MG; QD;

REACTIONS (16)
  - AMNESIA [None]
  - ARTERIOSCLEROSIS CORONARY ARTERY [None]
  - ARTERIOSPASM CORONARY [None]
  - HYPERREFLEXIA [None]
  - SEROTONIN SYNDROME [None]
  - COMA [None]
  - TREMOR [None]
  - MYDRIASIS [None]
  - DRUG INTERACTION [None]
  - MUSCLE RIGIDITY [None]
  - EXTENSOR PLANTAR RESPONSE [None]
  - CLONUS [None]
  - HEADACHE [None]
  - METABOLIC ACIDOSIS [None]
  - MYOCARDIAL INFARCTION [None]
  - MUSCULOSKELETAL PAIN [None]
